FAERS Safety Report 8336930-8 (Version None)
Quarter: 2012Q2

REPORT INFORMATION
  Report Type: 
  Country: None (occurrence: None)
  Receive Date: 20120504
  Receipt Date: 20120426
  Transmission Date: 20120825
  Serious: Yes (Hospitalization)
  Sender: FDA-Public Use
  Company Number: JP-SANOFI-AVENTIS-2012SA019334

PATIENT
  Age: 78 Year
  Sex: Female
  Weight: 51.8 kg

DRUGS (16)
  1. MONTELUKAST SODIUM [Concomitant]
  2. AMLODIPINE [Concomitant]
  3. ALL OTHER THERAPEUTIC PRODUCTS [Suspect]
     Route: 048
     Dates: start: 20111115, end: 20120221
  4. MUCOSOLVAN [Concomitant]
  5. ERYTHROCIN [Concomitant]
  6. OLMESARTAN MEDOXOMIL [Concomitant]
  7. BUDESONIDE W/FORMOTEROL FUMARATE [Suspect]
     Route: 055
  8. ZOLPIDEM [Suspect]
     Route: 048
  9. ALL OTHER THERAPEUTIC PRODUCTS [Suspect]
     Route: 048
     Dates: start: 20111101, end: 20111114
  10. MAGNESIUM SULFATE [Concomitant]
  11. PREDNISOLONE [Concomitant]
  12. PRAVASTATIN [Concomitant]
  13. CYANOCOBALAMIN [Concomitant]
  14. PRANOPROFEN [Concomitant]
  15. ALFAROL [Concomitant]
  16. RABEPRAZOLE SODIUM [Concomitant]

REACTIONS (2)
  - VENTRICULAR ARRHYTHMIA [None]
  - AORTIC DISSECTION [None]
